FAERS Safety Report 5497518-X (Version None)
Quarter: 2007Q4

REPORT INFORMATION
  Report Type: 
  Country: None (occurrence: None)
  Receive Date: 20071025
  Receipt Date: 20061130
  Transmission Date: 20080405
  Serious: No
  Sender: FDA-Public Use
  Company Number: A0629687A

PATIENT
  Sex: Female

DRUGS (11)
  1. ADVAIR DISKUS 100/50 [Suspect]
     Route: 055
  2. PROTONIX [Concomitant]
  3. VALIUM [Concomitant]
  4. SINGULAIR [Concomitant]
  5. ALLEGRA [Concomitant]
  6. FIORICET W/ CODEINE [Concomitant]
  7. CRESTOR [Concomitant]
  8. CYMBALTA [Concomitant]
  9. UNKNOWN MEDICATION [Concomitant]
  10. PERCOCET [Concomitant]
  11. ASMANEX TWISTHALER [Concomitant]

REACTIONS (3)
  - DYSPEPSIA [None]
  - PHARYNGOLARYNGEAL PAIN [None]
  - RASH [None]
